FAERS Safety Report 14953803 (Version 1)
Quarter: 2018Q2

REPORT INFORMATION
  Report Type: Spontaneous
  Country: CH (occurrence: CH)
  Receive Date: 20180530
  Receipt Date: 20180530
  Transmission Date: 20180711
  Serious: Yes (Hospitalization)
  Sender: FDA-Public Use
  Company Number: CH-TEVA-2018-CH-898946

PATIENT
  Age: 66 Year
  Sex: Male

DRUGS (1)
  1. CO-AMOXI -MEPHA 1000 LACTAB [Suspect]
     Active Substance: AMOXICILLIN\CLAVULANATE POTASSIUM
     Route: 048
     Dates: start: 20180325, end: 20180330

REACTIONS (3)
  - Eosinophilia [Recovered/Resolved]
  - Dermatitis exfoliative generalised [Recovering/Resolving]
  - Pruritus [Recovering/Resolving]

NARRATIVE: CASE EVENT DATE: 20180404
